FAERS Safety Report 23151272 (Version 1)
Quarter: 2023Q4

REPORT INFORMATION
  Report Type: Report from Study
  Country: US (occurrence: US)
  Receive Date: 20231106
  Receipt Date: 20231106
  Transmission Date: 20240110
  Serious: Yes (Other)
  Sender: FDA-Public Use
  Company Number: US-ABBVIE-5480359

PATIENT
  Sex: Female

DRUGS (1)
  1. RESTASIS [Suspect]
     Active Substance: CYCLOSPORINE
     Indication: Product used for unknown indication
     Dosage: FORM STRENGTH: 0.05 PERCENT?FREQUENCY TEXT: ONE DROP ON EACH EYE
     Route: 047

REACTIONS (3)
  - Macular degeneration [Not Recovered/Not Resolved]
  - Dry eye [Not Recovered/Not Resolved]
  - Glaucoma [Not Recovered/Not Resolved]
